FAERS Safety Report 7383502-8 (Version None)
Quarter: 2011Q1

REPORT INFORMATION
  Report Type: 
  Country: None (occurrence: None)
  Receive Date: 20110330
  Receipt Date: 20110322
  Transmission Date: 20110831
  Serious: Yes (Hospitalization, Other)
  Sender: FDA-Public Use
  Company Number: US-JNJFOC-20110309902

PATIENT
  Sex: Male

DRUGS (6)
  1. ACETAMINOPHEN [Suspect]
     Indication: OROPHARYNGEAL PAIN
     Route: 065
  2. LEVAQUIN [Suspect]
     Indication: UPPER RESPIRATORY TRACT INFECTION
     Route: 048
  3. NYQUIL [Suspect]
     Indication: PRODUCT USED FOR UNKNOWN INDICATION
     Route: 065
  4. OTC MEDICATION [Suspect]
     Indication: PRODUCT USED FOR UNKNOWN INDICATION
     Route: 065
  5. LEVAQUIN [Suspect]
     Indication: NASOPHARYNGITIS
     Route: 048
  6. ACETAMINOPHEN [Suspect]
     Indication: COUGH
     Route: 065

REACTIONS (2)
  - STEVENS-JOHNSON SYNDROME [None]
  - DYSPNOEA [None]
